FAERS Safety Report 4742213-5 (Version None)
Quarter: 2005Q3

REPORT INFORMATION
  Report Type: 
  Country: None (occurrence: None)
  Receive Date: 20050811
  Receipt Date: 20050322
  Transmission Date: 20060218
  Serious: No
  Sender: FDA-Public Use
  Company Number: US-GLAXOSMITHKLINE-A0550830A

PATIENT
  Age: 69 Year
  Sex: Male

DRUGS (12)
  1. PAXIL CR [Suspect]
     Indication: DEPRESSION
     Dosage: 25MG PER DAY
     Route: 048
  2. TOPROL-XL [Concomitant]
  3. CARDURA [Concomitant]
  4. PROTONIX [Concomitant]
  5. ASACOL [Concomitant]
  6. ZOCOR [Concomitant]
  7. COUMADIN [Concomitant]
  8. XANAX [Concomitant]
  9. CALTRATE [Concomitant]
  10. ASPIRIN [Concomitant]
  11. VITAMIN E [Concomitant]
  12. CITRUCEL [Concomitant]

REACTIONS (2)
  - FAECES HARD [None]
  - OESOPHAGEAL STENOSIS [None]
